FAERS Safety Report 7525302-1 (Version None)
Quarter: 2011Q2

REPORT INFORMATION
  Report Type: 
  Country: None (occurrence: None)
  Receive Date: 20110526
  Receipt Date: 20110516
  Transmission Date: 20111010
  Serious: Yes (Other)
  Sender: FDA-Public Use
  Company Number: FR-1185602

PATIENT
  Age: 72 Year
  Sex: Male
  Weight: 60 kg

DRUGS (5)
  1. FLUTICASONE PROPIONATE [Concomitant]
  2. EUPHYLLINE [Concomitant]
  3. SIMVASTATIM [Concomitant]
  4. METFORMIN HCL [Concomitant]
  5. TRAVATAN [Suspect]
     Indication: OPEN ANGLE GLAUCOMA
     Dosage: ONE DOSE, OPHTHALMIC
     Route: 047
     Dates: start: 20030701, end: 20110101

REACTIONS (2)
  - PUNCTATE KERATITIS [None]
  - VISUAL ACUITY REDUCED [None]
